FAERS Safety Report 15588689 (Version 1)
Quarter: 2018Q4

REPORT INFORMATION
  Report Type: Report from Study
  Country: JP (occurrence: JP)
  Receive Date: 20181106
  Receipt Date: 20181106
  Transmission Date: 20190205
  Serious: Yes (Hospitalization, Other)
  Sender: FDA-Public Use
  Company Number: JP-AMGEN-JPNSP2017180807

PATIENT
  Age: 39 Year
  Sex: Male
  Weight: 48 kg

DRUGS (4)
  1. DEXAMETHASONE. [Concomitant]
     Active Substance: DEXAMETHASONE
     Indication: PLASMA CELL MYELOMA
     Dosage: 220 MG, UNK (01-NOV-2017, 02-NOV, 08-NOV, 09-NOV, 31-JAN-2018)
     Route: 065
     Dates: start: 20171101, end: 20180201
  2. VICCLOX [Concomitant]
     Active Substance: ACYCLOVIR SODIUM
     Indication: ANTIVIRAL PROPHYLAXIS
     Dosage: UNK
     Route: 065
  3. CARFILZOMIB [Suspect]
     Active Substance: CARFILZOMIB
     Indication: PLASMA CELL MYELOMA
     Dosage: 20 MG/KG, UNK
     Route: 041
     Dates: start: 20171101, end: 20171102
  4. CARFILZOMIB [Suspect]
     Active Substance: CARFILZOMIB
     Dosage: 56 MG/KG, UNK
     Route: 041

REACTIONS (2)
  - Interstitial lung disease [Recovering/Resolving]
  - Graft versus host disease [Recovering/Resolving]

NARRATIVE: CASE EVENT DATE: 20171111
